FAERS Safety Report 5430442-7 (Version None)
Quarter: 2007Q3

REPORT INFORMATION
  Report Type: 
  Country: None (occurrence: None)
  Receive Date: 20070828
  Receipt Date: 20070813
  Transmission Date: 20080115
  Serious: Yes (Other)
  Sender: FDA-Public Use
  Company Number: 2007RR-09328

PATIENT
  Age: 66 Year
  Sex: Female

DRUGS (6)
  1. CLARITHROMYCIN [Suspect]
     Indication: PNEUMONIA
     Dosage: 500 MG, ORAL
     Route: 048
  2. HYDROCHLOROTIAZIDE/AMILORIDE (HYDROCLOROTHIAZIDE/AMILORIDE) [Suspect]
     Dosage: ORAL
     Route: 048
  3. CEFUROXIM ACETIL (CEFUROXIM ACETIL) [Suspect]
     Dosage: 1 G,; 1.5 G,
  4. CEFUROXIM ACETIL (CEFUROXIM ACETIL) [Suspect]
     Dosage: 1 G,; 1.5 G,
  5. RANITIDINE [Suspect]
     Dosage: 150 MG,
  6. PREDNISOLONE [Suspect]
     Indication: RHEUMATOID ARTHRITIS
     Dosage: 10 MG,

REACTIONS (1)
  - AGRANULOCYTOSIS [None]
